FAERS Safety Report 6165078-6 (Version None)
Quarter: 2009Q2

REPORT INFORMATION
  Report Type: 
  Country: None (occurrence: None)
  Receive Date: 20090423
  Receipt Date: 20090415
  Transmission Date: 20091009
  Serious: Yes (Life-Threatening)
  Sender: FDA-Public Use
  Company Number: DE-GILEAD-E2B_00000327

PATIENT
  Sex: Female
  Weight: 70 kg

DRUGS (4)
  1. AMBRISENTAN [Suspect]
     Indication: PULMONARY ARTERIAL HYPERTENSION
     Dosage: 5MG PER DAY
     Route: 048
     Dates: start: 20090101
  2. FORADIL [Concomitant]
     Indication: RESPIRATORY FAILURE
     Route: 055
  3. DIGITOXIN TAB [Concomitant]
     Indication: CARDIAC FAILURE
     Route: 048
  4. PERENTEROL [Concomitant]
     Indication: DIARRHOEA
     Dosage: 250MG TWICE PER DAY
     Route: 048

REACTIONS (5)
  - ACIDOSIS [None]
  - ANURIA [None]
  - HYPERKALAEMIA [None]
  - OLIGURIA [None]
  - RESPIRATORY FAILURE [None]
